FAERS Safety Report 9980245 (Version 1)
Quarter: 2014Q1

REPORT INFORMATION
  Report Type: Report from Study
  Country: US (occurrence: US)
  Receive Date: 20140307
  Receipt Date: 20140307
  Transmission Date: 20141002
  Serious: No
  Sender: FDA-Public Use
  Company Number: US-ABBVIE-13P-163-1175928-00

PATIENT
  Age: 46 Year
  Sex: Female

DRUGS (10)
  1. HUMIRA [Suspect]
     Indication: CROHN^S DISEASE
     Dates: start: 20131002
  2. PREDNISONE [Concomitant]
     Indication: PRODUCT USED FOR UNKNOWN INDICATION
     Dosage: CURRENTLY 20 MG ALTERNATING WITH 10 MG EVERY OTHER DAY TAPERING DOSE FOR TWO WEEKS
     Dates: end: 20131020
  3. PREDNISONE [Concomitant]
     Dosage: FOR TAPERING DOSE
     Dates: start: 20131020
  4. PREDNISONE [Concomitant]
     Dosage: TAPERING DOSE FOR TWO WEEKS
     Dates: start: 20131202
  5. AZATHIOPRINE [Concomitant]
     Indication: CROHN^S DISEASE
  6. XARELTO [Concomitant]
     Indication: THROMBOSIS
  7. CITRUCEL [Concomitant]
     Indication: PRODUCT USED FOR UNKNOWN INDICATION
  8. MULTIVITAMIN [Concomitant]
     Indication: PRODUCT USED FOR UNKNOWN INDICATION
  9. CALCIUM [Concomitant]
     Indication: PRODUCT USED FOR UNKNOWN INDICATION
  10. PROBIOTIC [Concomitant]
     Indication: CROHN^S DISEASE

REACTIONS (4)
  - Urine odour abnormal [Recovered/Resolved]
  - Urine odour abnormal [Not Recovered/Not Resolved]
  - Urinary tract infection [Not Recovered/Not Resolved]
  - Urinary tract infection [Recovered/Resolved]
